FAERS Safety Report 5859357-7 (Version None)
Quarter: 2008Q3

REPORT INFORMATION
  Report Type: 
  Country: None (occurrence: None)
  Receive Date: 20080827
  Receipt Date: 20080815
  Transmission Date: 20090109
  Serious: Yes (Other)
  Sender: FDA-Public Use
  Company Number: US-BAYER-200813432BCC

PATIENT
  Age: 87 Year
  Sex: Male
  Weight: 70 kg

DRUGS (5)
  1. ALEVE [Suspect]
     Indication: ARTHRALGIA
     Route: 048
     Dates: start: 20080812, end: 20080814
  2. PLAVIX [Concomitant]
  3. TOPRAL [Concomitant]
  4. DIOVAN [Concomitant]
  5. LIPITOR [Concomitant]

REACTIONS (3)
  - COORDINATION ABNORMAL [None]
  - LACRIMATION INCREASED [None]
  - TRANSIENT ISCHAEMIC ATTACK [None]
